FAERS Safety Report 5358536-5 (Version None)
Quarter: 2007Q2

REPORT INFORMATION
  Report Type: 
  Country: None (occurrence: None)
  Receive Date: 20070601
  Receipt Date: 20070411
  Transmission Date: 20071010
  Serious: No
  Sender: FDA-Public Use
  Company Number: PHEH2007US05014

PATIENT
  Sex: Female

DRUGS (1)
  1. ENABLEX [Suspect]
     Dates: start: 20070301

REACTIONS (4)
  - ABDOMINAL PAIN [None]
  - DEPRESSED MOOD [None]
  - IRRITABILITY [None]
  - URINARY TRACT INFECTION [None]
